FAERS Safety Report 13864556 (Version 7)
Quarter: 2018Q1

REPORT INFORMATION
  Report Type: Spontaneous
  Country: CA (occurrence: CA)
  Receive Date: 20170814
  Receipt Date: 20180130
  Transmission Date: 20180508
  Serious: Yes (Other)
  Sender: FDA-Public Use
  Company Number: CA-ROCHE-1978139

PATIENT
  Age: 77 Year
  Sex: Female

DRUGS (9)
  1. XOLAIR [Suspect]
     Active Substance: OMALIZUMAB
     Dosage: UNK
     Route: 058
     Dates: start: 20170808
  2. XOLAIR [Suspect]
     Active Substance: OMALIZUMAB
     Dosage: UNK
     Route: 058
     Dates: start: 20171016
  3. XOLAIR [Suspect]
     Active Substance: OMALIZUMAB
     Dosage: UNK
     Route: 058
     Dates: start: 20170711
  4. XOLAIR [Suspect]
     Active Substance: OMALIZUMAB
     Route: 058
     Dates: start: 20171213
  5. XOLAIR [Suspect]
     Active Substance: OMALIZUMAB
     Indication: ASTHMA
     Route: 058
     Dates: start: 20130730
  6. XOLAIR [Suspect]
     Active Substance: OMALIZUMAB
     Route: 058
     Dates: start: 20170905
  7. XOLAIR [Suspect]
     Active Substance: OMALIZUMAB
     Route: 058
     Dates: start: 20171213
  8. XOLAIR [Suspect]
     Active Substance: OMALIZUMAB
     Route: 058
     Dates: start: 20171016
  9. VENTOLIN [Concomitant]
     Active Substance: ALBUTEROL SULFATE
     Indication: PRODUCT USED FOR UNKNOWN INDICATION
     Route: 065

REACTIONS (15)
  - Productive cough [Unknown]
  - Lower respiratory tract infection [Unknown]
  - Influenza [Unknown]
  - Heart rate increased [Unknown]
  - Arthritis [Unknown]
  - Cystitis [Unknown]
  - Herpes zoster [Recovering/Resolving]
  - Forced expiratory volume decreased [Unknown]
  - Asthma [Unknown]
  - Nasopharyngitis [Unknown]
  - Rash [Unknown]
  - Lower respiratory tract congestion [Unknown]
  - Infection [Unknown]
  - Blood pressure systolic increased [Unknown]
  - Nasal congestion [Unknown]

NARRATIVE: CASE EVENT DATE: 20150630
